FAERS Safety Report 18731171 (Version 1)
Quarter: 2021Q1

REPORT INFORMATION
  Report Type: Spontaneous
  Country: US (occurrence: US)
  Receive Date: 20210112
  Receipt Date: 20210112
  Transmission Date: 20210419
  Serious: Yes (Death)
  Sender: FDA-Public Use
  Company Number: US-PERRIGO-21US000224

PATIENT
  Age: 17 Year
  Sex: Female

DRUGS (1)
  1. ACETAMINOPHEN. [Suspect]
     Active Substance: ACETAMINOPHEN
     Indication: COMPLETED SUICIDE
     Dosage: UNKNOWN, UNKNOWN
     Route: 048
     Dates: start: 2019, end: 2019

REACTIONS (4)
  - Liver injury [Fatal]
  - Shock [Fatal]
  - Intentional overdose [Fatal]
  - Intracranial pressure increased [Fatal]

NARRATIVE: CASE EVENT DATE: 2019
